FAERS Safety Report 16296480 (Version 1)
Quarter: 2019Q2

REPORT INFORMATION
  Report Type: Spontaneous
  Country: US (occurrence: US)
  Receive Date: 20190404
  Receipt Date: 20190404
  Transmission Date: 20190711
  Serious: Yes (Life-Threatening)
  Sender: FDA-Public Use
  Company Number: None

PATIENT
  Age: 77 Year
  Sex: Male
  Weight: 81.65 kg

DRUGS (7)
  1. OLMESARTAN MEDOXOMIL 40MG [Suspect]
     Active Substance: OLMESARTAN MEDOXOMIL
     Indication: HYPERTENSION
     Route: 048
  2. ALLOPURINOL 300MG [Concomitant]
     Active Substance: ALLOPURINOL
  3. ROSUVASTATIN 40 MG [Suspect]
     Active Substance: ROSUVASTATIN
  4. PLAVIX [Suspect]
     Active Substance: CLOPIDOGREL BISULFATE
  5. BYSTOLIC [Suspect]
     Active Substance: NEBIVOLOL HYDROCHLORIDE
  6. OLMESARTAN MEDOX/HCTZ 40/25 MG [Concomitant]
  7. AMLODIPINE [Suspect]
     Active Substance: AMLODIPINE BESYLATE

REACTIONS (3)
  - Blood pressure inadequately controlled [None]
  - Drug ineffective [None]
  - Product complaint [None]
